FAERS Safety Report 15313820 (Version 2)
Quarter: 2018Q4

REPORT INFORMATION
  Report Type: Spontaneous
  Country: LV (occurrence: LV)
  Receive Date: 20180824
  Receipt Date: 20181101
  Transmission Date: 20190204
  Serious: Yes (Other)
  Sender: FDA-Public Use
  Company Number: LV-TEVA-2018-LV-946261

PATIENT
  Age: 64 Year
  Sex: Male

DRUGS (6)
  1. NEBIVOLOL. [Suspect]
     Active Substance: NEBIVOLOL
     Route: 065
  2. SPIRONOLACTON 50 MG [Suspect]
     Active Substance: SPIRONOLACTONE
     Route: 065
     Dates: start: 201411
  3. TICAGRELOR. [Suspect]
     Active Substance: TICAGRELOR
     Route: 065
  4. ATORVASTATIN [Suspect]
     Active Substance: ATORVASTATIN
     Route: 065
  5. ASPIRIN. [Suspect]
     Active Substance: ASPIRIN
     Route: 065
  6. PANTOPRAZOLE [Suspect]
     Active Substance: PANTOPRAZOLE
     Route: 065

REACTIONS (3)
  - Dyspnoea [Recovering/Resolving]
  - Blood pressure decreased [Unknown]
  - Brain natriuretic peptide increased [Unknown]
